FAERS Safety Report 25619261 (Version 1)
Quarter: 2025Q3

REPORT INFORMATION
  Report Type: Spontaneous
  Country: TW (occurrence: TW)
  Receive Date: 20250729
  Receipt Date: 20250729
  Transmission Date: 20251020
  Serious: Yes (Other)
  Sender: AMGEN
  Company Number: TW-AMGEN-TWNSP2025146030

PATIENT

DRUGS (3)
  1. PANITUMUMAB [Suspect]
     Active Substance: PANITUMUMAB
     Indication: Lung adenocarcinoma
     Route: 065
  2. PANITUMUMAB [Suspect]
     Active Substance: PANITUMUMAB
     Indication: Adenocarcinoma of colon
  3. PANITUMUMAB [Suspect]
     Active Substance: PANITUMUMAB
     Indication: Squamous cell carcinoma of lung

REACTIONS (6)
  - Vasculitis [Unknown]
  - Paronychia [Unknown]
  - Adverse event [Unknown]
  - Skin irritation [Unknown]
  - Erythema [Unknown]
  - Skin exfoliation [Unknown]
